FAERS Safety Report 15743144 (Version 1)
Quarter: 2018Q4

REPORT INFORMATION
  Report Type: Spontaneous
  Country: US (occurrence: US)
  Receive Date: 20181220
  Receipt Date: 20181220
  Transmission Date: 20190205
  Serious: No
  Sender: FDA-Public Use
  Company Number: US-SHIRE-US201848421

PATIENT
  Sex: Female

DRUGS (2)
  1. LIALDA [Suspect]
     Active Substance: MESALAMINE
     Indication: COLITIS ULCERATIVE
     Route: 065
  2. HUMIRA [Suspect]
     Active Substance: ADALIMUMAB
     Indication: COLITIS ULCERATIVE
     Route: 058

REACTIONS (7)
  - Abdominal discomfort [Recovered/Resolved]
  - Arthralgia [Recovered/Resolved]
  - Arthralgia [Recovering/Resolving]
  - Sensitivity to weather change [Recovering/Resolving]
  - Cystitis [Recovering/Resolving]
  - Joint swelling [Recovering/Resolving]
  - Joint range of motion decreased [Not Recovered/Not Resolved]

NARRATIVE: CASE EVENT DATE: 2016
